FAERS Safety Report 17578404 (Version 1)
Quarter: 2020Q1

REPORT INFORMATION
  Report Type: Spontaneous
  Country: PL (occurrence: PL)
  Receive Date: 20200324
  Receipt Date: 20200324
  Transmission Date: 20200409
  Serious: Yes (Life-Threatening, Other)
  Sender: FDA-Public Use
  Company Number: PL-ELI_LILLY_AND_COMPANY-PL202003010364

PATIENT
  Sex: Male
  Weight: 90 kg

DRUGS (3)
  1. PEMETREXED. [Suspect]
     Active Substance: PEMETREXED
     Indication: LUNG CARCINOMA CELL TYPE UNSPECIFIED STAGE 0
     Dosage: 1000 MG, UNKNOWN
     Route: 065
     Dates: start: 20200228, end: 20200228
  2. CARBOPLATIN. [Suspect]
     Active Substance: CARBOPLATIN
     Indication: LUNG CARCINOMA CELL TYPE UNSPECIFIED STAGE 0
     Dosage: 437 MG, UNKNOWN
     Route: 042
     Dates: start: 20200228, end: 20200228
  3. ZARZIO [Concomitant]
     Active Substance: FILGRASTIM
     Indication: PRODUCT USED FOR UNKNOWN INDICATION
     Dosage: 480 UG, UNKNOWN
     Route: 065

REACTIONS (3)
  - Neutropenia [Unknown]
  - Off label use [Unknown]
  - Leukopenia [Unknown]

NARRATIVE: CASE EVENT DATE: 20200311
